FAERS Safety Report 8837517 (Version 1)
Quarter: 2012Q4

REPORT INFORMATION
  Report Type: 
  Country: US (occurrence: US)
  Receive Date: 20121012
  Receipt Date: 20121012
  Transmission Date: 20130627
  Serious: No
  Sender: FDA-Public Use
  Company Number: US-VERTEX PHARMACEUTICAL INC.-2012-022290

PATIENT

DRUGS (6)
  1. INCIVEK [Suspect]
     Indication: HEPATITIS C
     Dosage: 750 mg, tid
     Route: 048
     Dates: start: 20120822, end: 201209
  2. INCIVEK [Suspect]
     Dosage: 750 mg, tid
     Route: 048
     Dates: start: 201209
  3. COPEGUS [Suspect]
     Indication: HEPATITIS C
     Dosage: 200 mg, bid
     Route: 048
     Dates: start: 20120822, end: 201209
  4. COPEGUS [Suspect]
     Dosage: 200 mg, bid
     Route: 048
     Dates: start: 201209
  5. PEGASYS [Suspect]
     Indication: HEPATITIS C
     Dosage: 180 ?g, qw
     Route: 058
     Dates: start: 20120822, end: 201209
  6. PEGASYS [Suspect]
     Dosage: 180 ?g, qw
     Route: 058
     Dates: start: 201209

REACTIONS (4)
  - Drug dose omission [Recovered/Resolved]
  - Proctalgia [Recovered/Resolved]
  - Rectal haemorrhage [Recovered/Resolved]
  - Anal pruritus [Not Recovered/Not Resolved]
